FAERS Safety Report 14663019 (Version 1)
Quarter: 2018Q1

REPORT INFORMATION
  Report Type: Spontaneous
  Country: DE (occurrence: DE)
  Receive Date: 20180321
  Receipt Date: 20180321
  Transmission Date: 20180509
  Serious: Yes (Death)
  Sender: FDA-Public Use
  Company Number: DE-AUROBINDO-AUR-APL-2018-015743

PATIENT
  Age: 79 Year
  Sex: Male

DRUGS (5)
  1. FINASTERIDE. [Suspect]
     Active Substance: FINASTERIDE
     Indication: PRODUCT USED FOR UNKNOWN INDICATION
     Dosage: 5 MILLIGRAM
     Dates: start: 20170207
  2. VENLAFAXINE [Interacting]
     Active Substance: VENLAFAXINE HYDROCHLORIDE
     Indication: PRODUCT USED FOR UNKNOWN INDICATION
     Dosage: 37.5 MILLIGRAM
     Dates: start: 20170207
  3. TAMSULOSIN HEXAL [Interacting]
     Active Substance: TAMSULOSIN HYDROCHLORIDE
     Indication: PRODUCT USED FOR UNKNOWN INDICATION
     Dosage: 0.4 MILLIGRAM
     Dates: start: 20170206, end: 20170207
  4. RAMIPRIL. [Interacting]
     Active Substance: RAMIPRIL
     Indication: PRODUCT USED FOR UNKNOWN INDICATION
     Dosage: 2.5 MILLIGRAM
     Dates: start: 20170207
  5. MELPERON [Interacting]
     Active Substance: MELPERONE
     Indication: PRODUCT USED FOR UNKNOWN INDICATION
     Dosage: 15 MILLIGRAM
     Dates: start: 20170207

REACTIONS (1)
  - Death [Fatal]

NARRATIVE: CASE EVENT DATE: 20170208
